FAERS Safety Report 4804975-8 (Version None)
Quarter: 2005Q4

REPORT INFORMATION
  Report Type: 
  Country: None (occurrence: None)
  Receive Date: 20051012
  Receipt Date: 20051010
  Transmission Date: 20060501
  Serious: Yes (Death)
  Sender: FDA-Public Use
  Company Number: 003-024

PATIENT
  Age: 54 Year
  Sex: Male

DRUGS (1)
  1. CROFAB [Suspect]
     Indication: SNAKE BITE
     Dosage: 18 VIALS IV
     Route: 042
     Dates: start: 20051001

REACTIONS (1)
  - DEATH [None]
